FAERS Safety Report 10754818 (Version 2)
Quarter: 2015Q1

REPORT INFORMATION
  Report Type: Spontaneous
  Country: FR (occurrence: FR)
  Receive Date: 20150202
  Receipt Date: 20150331
  Transmission Date: 20150721
  Serious: Yes (Death)
  Sender: FDA-Public Use
  Company Number: FR-SA-2015SA009296

PATIENT
  Age: 21 Year
  Sex: Female
  Weight: 90 kg

DRUGS (1)
  1. LOVENOX [Suspect]
     Active Substance: ENOXAPARIN SODIUM
     Indication: LIMB FRACTURE
     Route: 065
     Dates: start: 20141016, end: 20141116

REACTIONS (2)
  - Pulmonary embolism [Fatal]
  - Phlebitis [Fatal]

NARRATIVE: CASE EVENT DATE: 20150105
